FAERS Safety Report 6922794-3 (Version None)
Quarter: 2010Q3

REPORT INFORMATION
  Report Type: 
  Country: None (occurrence: None)
  Receive Date: 20100813
  Receipt Date: 20100810
  Transmission Date: 20110219
  Serious: Yes (Other)
  Sender: FDA-Public Use
  Company Number: US-BRISTOL-MYERS SQUIBB COMPANY-15233190

PATIENT
  Sex: Female

DRUGS (1)
  1. ONGLYZA [Suspect]

REACTIONS (2)
  - EYE SWELLING [None]
  - URTICARIA [None]
